FAERS Safety Report 25169251 (Version 2)
Quarter: 2025Q2

REPORT INFORMATION
  Report Type: Spontaneous
  Country: IT (occurrence: IT)
  Receive Date: 20250407
  Receipt Date: 20250408
  Transmission Date: 20250716
  Serious: Yes (Hospitalization)
  Sender: SANDOZ
  Company Number: IT-MLMSERVICE-20250303-PI434637-00241-1

PATIENT
  Sex: Female
  Weight: 0.56 kg

DRUGS (6)
  1. NITROGLYCERIN [Suspect]
     Active Substance: NITROGLYCERIN
     Route: 062
  2. NITROGLYCERIN [Suspect]
     Active Substance: NITROGLYCERIN
     Route: 062
  3. NITROGLYCERIN [Suspect]
     Active Substance: NITROGLYCERIN
     Indication: Catheter site ischaemia
     Route: 062
  4. EPINEPHRINE [Concomitant]
     Active Substance: EPINEPHRINE
     Indication: Neonatal hypotension
     Route: 065
  5. DOBUTAMINE [Concomitant]
     Active Substance: DOBUTAMINE HYDROCHLORIDE
     Indication: Neonatal hypotension
     Route: 065
  6. DOPAMINE [Concomitant]
     Active Substance: DOPAMINE HYDROCHLORIDE
     Indication: Neonatal hypotension
     Route: 065

REACTIONS (3)
  - Methaemoglobinaemia [Recovered/Resolved]
  - Wrong technique in product usage process [Unknown]
  - Off label use [Unknown]
